FAERS Safety Report 10475462 (Version 1)
Quarter: 2014Q3

REPORT INFORMATION
  Report Type: Spontaneous
  Country: US (occurrence: None)
  Receive Date: 20140924
  Receipt Date: 20140924
  Transmission Date: 20150326
  Serious: Yes (Hospitalization)
  Sender: FDA-Public Use
  Company Number: None

PATIENT
  Age: 85 Year
  Sex: Female
  Weight: 93 kg

DRUGS (19)
  1. SYMBICORT [Concomitant]
     Active Substance: BUDESONIDE\FORMOTEROL FUMARATE DIHYDRATE
  2. ZYRTEC [Concomitant]
     Active Substance: CETIRIZINE HYDROCHLORIDE
  3. LASIX [Suspect]
     Active Substance: FUROSEMIDE
     Route: 048
  4. COUMADIN [Concomitant]
     Active Substance: WARFARIN SODIUM
  5. AMITRIPTYLINE [Concomitant]
     Active Substance: AMITRIPTYLINE
  6. PLAVIX [Concomitant]
     Active Substance: CLOPIDOGREL BISULFATE
  7. COLCHICINE. [Concomitant]
     Active Substance: COLCHICINE
  8. LEVEMIR [Concomitant]
     Active Substance: INSULIN DETEMIR
  9. VICODIN [Concomitant]
     Active Substance: ACETAMINOPHEN\HYDROCODONE BITARTRATE
  10. COLACE [Concomitant]
     Active Substance: DOCUSATE SODIUM
  11. ALREX [Concomitant]
     Active Substance: LOTEPREDNOL ETABONATE
  12. EXFORGE [Suspect]
     Active Substance: AMLODIPINE BESYLATE\VALSARTAN
     Indication: HYPERTENSION
     Dosage: CHRONIC, 10-320 MG, DAILY, PO
     Route: 048
  13. ASA [Concomitant]
     Active Substance: ASPIRIN
  14. POTASSIUM CHLORIDE. [Suspect]
     Active Substance: POTASSIUM CHLORIDE
     Indication: BLOOD POTASSIUM DECREASED
     Dosage: 20MEQ, QAM
     Route: 048
  15. TRAMADOL [Concomitant]
     Active Substance: TRAMADOL
  16. CA+D [Concomitant]
  17. GABAPENTIN. [Concomitant]
     Active Substance: GABAPENTIN
  18. AMBIEN [Concomitant]
     Active Substance: ZOLPIDEM TARTRATE
  19. CRESTOR [Concomitant]
     Active Substance: ROSUVASTATIN CALCIUM

REACTIONS (6)
  - Cardio-respiratory arrest [None]
  - Renal failure acute [None]
  - Atrioventricular block [None]
  - Hyperkalaemia [None]
  - Nodal arrhythmia [None]
  - Urinary retention [None]

NARRATIVE: CASE EVENT DATE: 20140315
